FAERS Safety Report 5110873-5 (Version None)
Quarter: 2006Q3

REPORT INFORMATION
  Report Type: 
  Country: None (occurrence: None)
  Receive Date: 20060918
  Receipt Date: 20060907
  Transmission Date: 20061208
  Serious: Yes (Other)
  Sender: FDA-Public Use
  Company Number: HQWYE420307SEP06

PATIENT
  Age: 69 Year
  Sex: Female

DRUGS (3)
  1. CORDARONE [Suspect]
     Indication: ATRIAL FIBRILLATION
     Dosage: 100 MG 1X PER 1 DAY; ORAL
     Route: 048
     Dates: start: 20060727, end: 20060826
  2. CORDARONE [Suspect]
     Dosage: 200 MG 1X PER 1 DAY; ORAL
     Route: 048
     Dates: start: 20060628, end: 20060726
  3. LOPRIL             (CAPTOPRIL) [Concomitant]

REACTIONS (6)
  - CARDIOMEGALY [None]
  - CHEST PAIN [None]
  - COUGH [None]
  - DYSPNOEA [None]
  - PALPITATIONS [None]
  - PLEURAL EFFUSION [None]
